FAERS Safety Report 14398702 (Version 1)
Quarter: 2018Q1

REPORT INFORMATION
  Report Type: Spontaneous
  Country: FR (occurrence: FR)
  Receive Date: 20180117
  Receipt Date: 20180117
  Transmission Date: 20180509
  Serious: Yes (Other)
  Sender: FDA-Public Use
  Company Number: FR-MERCK KGAA-2040127

PATIENT
  Age: 57 Year
  Sex: Female

DRUGS (5)
  1. LEVOTHYROX [Suspect]
     Active Substance: LEVOTHYROXINE
  2. LEVOTHYROX [Suspect]
     Active Substance: LEVOTHYROXINE
     Dates: start: 201710
  3. LEVOTHYROX [Suspect]
     Active Substance: LEVOTHYROXINE
  4. LEVOTHYROX [Suspect]
     Active Substance: LEVOTHYROXINE
  5. NOVOTHYROX [Suspect]
     Active Substance: LEVOTHYROXINE SODIUM
     Indication: AUTOIMMUNE THYROIDITIS

REACTIONS (6)
  - Amnesia [Not Recovered/Not Resolved]
  - Psychiatric symptom [None]
  - Derealisation [None]
  - Disturbance in attention [Not Recovered/Not Resolved]
  - Depression [None]
  - Hyperthyroidism [None]
